FAERS Safety Report 5914625-5 (Version None)
Quarter: 2008Q4

REPORT INFORMATION
  Report Type: 
  Country: None (occurrence: None)
  Receive Date: 20081008
  Receipt Date: 20080924
  Transmission Date: 20090506
  Serious: Yes (Hospitalization)
  Sender: FDA-Public Use
  Company Number: 230397K07USA

PATIENT
  Age: 52 Year
  Sex: Female
  Weight: 99 kg

DRUGS (4)
  1. REBIF [Suspect]
     Indication: MULTIPLE SCLEROSIS
     Dosage: 44 MCG, 3 IN 1 WEEKS, SUBCUTANEOUS
     Route: 058
     Dates: start: 20060214
  2. SIMVASTATIN [Concomitant]
  3. LISINOPRIL [Concomitant]
  4. EFFEXOR [Concomitant]

REACTIONS (2)
  - ANKLE FRACTURE [None]
  - FALL [None]
